FAERS Safety Report 4576119-1 (Version None)
Quarter: 2005Q1

REPORT INFORMATION
  Report Type: 
  Country: None (occurrence: None)
  Receive Date: 20050209
  Receipt Date: 20050127
  Transmission Date: 20050727
  Serious: Yes (Other)
  Sender: FDA-Public Use
  Company Number: US-JNJFOC-20040703054

PATIENT
  Sex: Female

DRUGS (25)
  1. REMICADE [Suspect]
     Route: 042
  2. REMICADE [Suspect]
     Indication: RHEUMATOID ARTHRITIS
     Route: 042
  3. NEURONTIN [Concomitant]
     Indication: NEUROPATHY
  4. SYNTHROID [Concomitant]
     Indication: HYPOTHYROIDISM
  5. PROTONIX [Concomitant]
  6. DOXYCYCLINE [Concomitant]
     Indication: INFECTION PROPHYLAXIS
  7. MULTIVITAMIN [Concomitant]
  8. MULTIVITAMIN [Concomitant]
  9. MULTIVITAMIN [Concomitant]
  10. MULTIVITAMIN [Concomitant]
  11. MULTIVITAMIN [Concomitant]
  12. MULTIVITAMIN [Concomitant]
  13. MULTIVITAMIN [Concomitant]
  14. MULTIVITAMIN [Concomitant]
  15. MSM [Concomitant]
  16. GLUCOSAMINE CHONDROITIN [Concomitant]
  17. GLUCOSAMINE CHONDROITIN [Concomitant]
  18. GLUCOSAMINE CHONDROITIN [Concomitant]
  19. GLUCOSAMINE CHONDROITIN [Concomitant]
  20. GINSENG [Concomitant]
  21. VITAMIN B COMPLEX CAP [Concomitant]
  22. VITAMIN B COMPLEX CAP [Concomitant]
  23. VITAMIN B COMPLEX CAP [Concomitant]
  24. VITAMIN B COMPLEX CAP [Concomitant]
  25. THIAMIN [Concomitant]

REACTIONS (1)
  - LIVER FUNCTION TEST ABNORMAL [None]
